FAERS Safety Report 23662284 (Version 7)
Quarter: 2024Q2

REPORT INFORMATION
  Report Type: Spontaneous
  Country: CA (occurrence: CA)
  Receive Date: 20240322
  Receipt Date: 20240607
  Transmission Date: 20240716
  Serious: Yes (Hospitalization)
  Sender: FDA-Public Use
  Company Number: CA-CELLTRION INC.-2023CA021303

PATIENT

DRUGS (4)
  1. INFLECTRA [Suspect]
     Active Substance: INFLIXIMAB-DYYB
     Indication: Colitis ulcerative
     Dosage: 700 MG,0, 2,6, THEN EVERY 8 WEEKS, (WEEK 0 DOSE RECEIVED AT HOSPITAL)
     Route: 042
     Dates: start: 20231013, end: 20231013
  2. INFLECTRA [Suspect]
     Active Substance: INFLIXIMAB-DYYB
     Dosage: 600MG (10 MG/KG), EVERY 8 WEEKS, (HOSPITAL RESTART, SKIP WEEK 2 WEEK 6 INDUCTION)
     Route: 042
     Dates: start: 20240314
  3. METHYLPREDNISOLONE [Concomitant]
     Active Substance: METHYLPREDNISOLONE
     Indication: Colitis ulcerative
     Dosage: 1 DF
     Route: 042
  4. PREDNISONE [Concomitant]
     Active Substance: PREDNISONE
     Dosage: UNK
     Dates: start: 2023, end: 20231201

REACTIONS (7)
  - Condition aggravated [Not Recovered/Not Resolved]
  - Anal polyp [Unknown]
  - Infusion related reaction [Unknown]
  - Urticaria [Not Recovered/Not Resolved]
  - Treatment failure [Unknown]
  - Off label use [Unknown]
  - Off label use [Unknown]

NARRATIVE: CASE EVENT DATE: 20231013
